FAERS Safety Report 8269749-7 (Version None)
Quarter: 2012Q2

REPORT INFORMATION
  Report Type: 
  Country: None (occurrence: None)
  Receive Date: 20120406
  Receipt Date: 20120404
  Transmission Date: 20120825
  Serious: Yes (Death)
  Sender: FDA-Public Use
  Company Number: ADR-2011-10921

PATIENT
  Sex: Male

DRUGS (5)
  1. DILAUDID [Concomitant]
  2. DROPERIDOL [Concomitant]
  3. BUPIVACAINE HCL [Concomitant]
  4. LIORESAL [Suspect]
     Indication: MUSCLE SPASTICITY
     Dosage: 230.94 MCG, DAILY, INT
     Route: 037
  5. CLONIDINE [Concomitant]

REACTIONS (1)
  - PANCREATIC CARCINOMA [None]
